FAERS Safety Report 19002409 (Version 1)
Quarter: 2021Q1

REPORT INFORMATION
  Report Type: Spontaneous
  Country: RU (occurrence: RU)
  Receive Date: 20210312
  Receipt Date: 20210312
  Transmission Date: 20210420
  Serious: Yes (Life-Threatening)
  Sender: FDA-Public Use
  Company Number: RU-NOVOPROD-793135

PATIENT
  Age: 70 Year
  Sex: Male
  Weight: 98 kg

DRUGS (2)
  1. BIOSULIN R [Concomitant]
     Active Substance: INSULIN HUMAN
     Dosage: UNK
  2. ACTRAPID [Suspect]
     Active Substance: INSULIN HUMAN
     Indication: PRODUCT USED FOR UNKNOWN INDICATION
     Dosage: 48 IU, QD
     Route: 030
     Dates: start: 20200101, end: 20210111

REACTIONS (2)
  - Thirst [Recovered/Resolved]
  - Drug ineffective [Recovered/Resolved]

NARRATIVE: CASE EVENT DATE: 20200101
